FAERS Safety Report 5313038-7 (Version None)
Quarter: 2007Q2

REPORT INFORMATION
  Report Type: 
  Country: None (occurrence: None)
  Receive Date: 20070430
  Receipt Date: 20070315
  Transmission Date: 20071010
  Serious: Yes (Hospitalization, Other)
  Sender: FDA-Public Use
  Company Number: US-PFIZER INC-2007023010

PATIENT
  Sex: Female
  Weight: 78 kg

DRUGS (10)
  1. CHANTIX [Suspect]
     Indication: SMOKING CESSATION THERAPY
     Dates: start: 20061201, end: 20061201
  2. LISINOPRIL [Concomitant]
  3. PREDNISONE TAB [Concomitant]
  4. POTASSIUM CHLORIDE [Concomitant]
  5. AMLODIPINE [Concomitant]
  6. PAROXETINE [Concomitant]
  7. THEOPHYLLINE [Concomitant]
  8. ESTRADIOL [Concomitant]
  9. MAGNESIUM CARBONATE [Concomitant]
  10. CALCIUM CARBONATE [Concomitant]

REACTIONS (1)
  - CEREBROVASCULAR ACCIDENT [None]
